FAERS Safety Report 7531813-5 (Version None)
Quarter: 2011Q2

REPORT INFORMATION
  Report Type: 
  Country: None (occurrence: None)
  Receive Date: 20110608
  Receipt Date: 20110602
  Transmission Date: 20111010
  Serious: Yes (Other)
  Sender: FDA-Public Use
  Company Number: US-ROCHE-780698

PATIENT
  Sex: Female

DRUGS (1)
  1. BONIVA [Suspect]
     Route: 048

REACTIONS (5)
  - OEDEMA PERIPHERAL [None]
  - MEMORY IMPAIRMENT [None]
  - BONE LOSS [None]
  - MEDICATION ERROR [None]
  - ANKLE FRACTURE [None]
